FAERS Safety Report 5193225-1 (Version None)
Quarter: 2006Q4

REPORT INFORMATION
  Report Type: 
  Country: None (occurrence: None)
  Receive Date: 20061228
  Receipt Date: 20060714
  Transmission Date: 20070319
  Serious: No
  Sender: FDA-Public Use
  Company Number: US-GLAXOSMITHKLINE-A0612328A

PATIENT
  Age: 67 Year
  Sex: Male

DRUGS (2)
  1. AVODART [Suspect]
     Indication: BENIGN PROSTATIC HYPERPLASIA
     Dosage: 1CAP PER DAY
     Route: 048
  2. LEVITRA [Suspect]
     Indication: LIBIDO DECREASED
     Route: 048

REACTIONS (3)
  - DRUG INEFFECTIVE [None]
  - LIBIDO DECREASED [None]
  - POLLAKIURIA [None]
